FAERS Safety Report 23455683 (Version 1)
Quarter: 2024Q1

REPORT INFORMATION
  Report Type: Spontaneous
  Country: GB (occurrence: GB)
  Receive Date: 20240130
  Receipt Date: 20240130
  Transmission Date: 20240410
  Serious: Yes (Other)
  Sender: FDA-Public Use
  Company Number: None

PATIENT
  Sex: Female

DRUGS (1)
  1. AMLODIPINE [Suspect]
     Active Substance: AMLODIPINE BESYLATE
     Indication: Product used for unknown indication
     Dates: start: 2015

REACTIONS (9)
  - Muscle spasms [Unknown]
  - Insomnia [Unknown]
  - Tinnitus [Unknown]
  - Abnormal loss of weight [Unknown]
  - Polyuria [Unknown]
  - Gingival swelling [Unknown]
  - Fatigue [Unknown]
  - Rhinitis [Unknown]
  - Pollakiuria [Unknown]
